FAERS Safety Report 8541892-4 (Version None)
Quarter: 2012Q3

REPORT INFORMATION
  Report Type: 
  Country: None (occurrence: None)
  Receive Date: 20120726
  Receipt Date: 20111021
  Transmission Date: 20120928
  Serious: No
  Sender: FDA-Public Use
  Company Number: US-ASTRAZENECA-2011SE55207

PATIENT
  Sex: Female

DRUGS (6)
  1. AMBIEN [Concomitant]
  2. SEROQUEL [Suspect]
     Indication: SLEEP DISORDER
     Route: 048
  3. NEROTIN [Concomitant]
  4. ZANTAC [Concomitant]
  5. BENTYL [Concomitant]
  6. SIMBALCA [Concomitant]

REACTIONS (2)
  - EATING DISORDER [None]
  - OFF LABEL USE [None]
